FAERS Safety Report 12472075 (Version 4)
Quarter: 2016Q3

REPORT INFORMATION
  Report Type: Spontaneous
  Country: US (occurrence: US)
  Receive Date: 20160616
  Receipt Date: 20160810
  Transmission Date: 20161109
  Serious: Yes (Other)
  Sender: FDA-Public Use
  Company Number: US-JNJFOC-20160612138

PATIENT
  Sex: Male
  Weight: 97.07 kg

DRUGS (3)
  1. RISPERDAL [Suspect]
     Active Substance: RISPERIDONE
     Indication: PSYCHOTIC DISORDER
     Route: 048
     Dates: start: 2005, end: 2009
  2. RISPERDAL [Suspect]
     Active Substance: RISPERIDONE
     Indication: PSYCHOTIC DISORDER
     Route: 048
     Dates: end: 2014
  3. RISPERDAL [Suspect]
     Active Substance: RISPERIDONE
     Indication: PSYCHOTIC DISORDER
     Dosage: STRENGTH OF EACH TABLET: 3 MG
     Route: 048
     Dates: start: 2009, end: 2013

REACTIONS (15)
  - Renal failure [Not Recovered/Not Resolved]
  - Hypertension [Unknown]
  - Coma [Recovered/Resolved]
  - Incorrect dose administered [Unknown]
  - Sluggishness [Unknown]
  - Feeling abnormal [Unknown]
  - Abnormal loss of weight [Not Recovered/Not Resolved]
  - Adverse event [Unknown]
  - Drug ineffective for unapproved indication [Unknown]
  - Hallucination, auditory [Unknown]
  - Off label use [Unknown]
  - Breast discharge [Unknown]
  - Unevaluable event [Unknown]
  - Paranoia [Unknown]
  - Treatment noncompliance [Unknown]

NARRATIVE: CASE EVENT DATE: 2009
